FAERS Safety Report 5570825-8 (Version None)
Quarter: 2007Q4

REPORT INFORMATION
  Report Type: 
  Country: None (occurrence: None)
  Receive Date: 20071221
  Receipt Date: 20071213
  Transmission Date: 20080405
  Serious: Yes (Death, Hospitalization, Other)
  Sender: FDA-Public Use
  Company Number: US-ELI_LILLY_AND_COMPANY-US200708004135

PATIENT
  Sex: Female

DRUGS (2)
  1. FORTEO [Suspect]
     Indication: OSTEOPOROSIS
     Dosage: UNK, UNK
  2. TOPROL-XL [Concomitant]
     Indication: BLOOD PRESSURE

REACTIONS (19)
  - ACCIDENT AT HOME [None]
  - ACTIVITIES OF DAILY LIVING IMPAIRED [None]
  - CARDIOMYOPATHY [None]
  - CEREBROVASCULAR ACCIDENT [None]
  - CEREBROVASCULAR DISORDER [None]
  - DECUBITUS ULCER [None]
  - DIET REFUSAL [None]
  - DYSPHAGIA [None]
  - FALL [None]
  - HEMIPARESIS [None]
  - HIP FRACTURE [None]
  - HYPERSOMNIA [None]
  - MYOCARDIAL INFARCTION [None]
  - MYOCARDIAL ISCHAEMIA [None]
  - PAIN [None]
  - PELVIC FRACTURE [None]
  - REFUSAL OF TREATMENT BY PATIENT [None]
  - TRANSIENT ISCHAEMIC ATTACK [None]
  - WEIGHT DECREASED [None]
